FAERS Safety Report 25250091 (Version 1)
Quarter: 2025Q2

REPORT INFORMATION
  Report Type: Spontaneous
  Country: US (occurrence: None)
  Receive Date: 20250428
  Receipt Date: 20250428
  Transmission Date: 20250716
  Serious: Yes (Hospitalization)
  Sender: FDA-CTU
  Company Number: None

PATIENT
  Age: 59 Year
  Sex: Female

DRUGS (1)
  1. PONVORY [Suspect]
     Active Substance: PONESIMOD
     Dosage: 20 MG DAILY ORAL
     Route: 048

REACTIONS (2)
  - Therapy interrupted [None]
  - Metapneumovirus infection [None]

NARRATIVE: CASE EVENT DATE: 20250409
